FAERS Safety Report 21161720 (Version 5)
Quarter: 2022Q4

REPORT INFORMATION
  Report Type: Report from Study
  Country: US (occurrence: US)
  Receive Date: 20220802
  Receipt Date: 20221005
  Transmission Date: 20230112
  Serious: Yes (Congenital Anomaly, Other)
  Sender: FDA-Public Use
  Company Number: US-GILEAD-2022-0591759

PATIENT
  Sex: Female

DRUGS (2)
  1. EMTRICITABINE\TENOFOVIR [Suspect]
     Active Substance: EMTRICITABINE\TENOFOVIR
     Indication: HIV infection
     Dosage: 225 MG, QD
     Route: 050
  2. TIVICAY [Suspect]
     Active Substance: DOLUTEGRAVIR SODIUM
     Indication: HIV infection
     Dosage: 50 MG, QD
     Route: 050

REACTIONS (3)
  - Developmental hip dysplasia [Unknown]
  - Foetal growth restriction [Unknown]
  - Foetal exposure during pregnancy [Recovered/Resolved]

NARRATIVE: CASE EVENT DATE: 20211028
